FAERS Safety Report 9928705 (Version 1)
Quarter: 2014Q1

REPORT INFORMATION
  Report Type: Spontaneous
  Country: AU (occurrence: None)
  Receive Date: 20140225
  Receipt Date: 20140225
  Transmission Date: 20141002
  Serious: Yes (Other)
  Sender: FDA-Public Use
  Company Number: 2013000515

PATIENT
  Sex: Male

DRUGS (9)
  1. ACEON [Suspect]
     Indication: PRODUCT USED FOR UNKNOWN INDICATION
  2. COLGOUT [Suspect]
     Indication: PRODUCT USED FOR UNKNOWN INDICATION
  3. IMDUR [Suspect]
     Indication: PRODUCT USED FOR UNKNOWN INDICATION
  4. LASIX [Suspect]
     Indication: PRODUCT USED FOR UNKNOWN INDICATION
  5. LOSEC [Suspect]
     Indication: PRODUCT USED FOR UNKNOWN INDICATION
  6. NORVASC [Suspect]
     Indication: PRODUCT USED FOR UNKNOWN INDICATION
  7. SLOW-K [Suspect]
     Indication: PRODUCT USED FOR UNKNOWN INDICATION
  8. VENTOLIN [Suspect]
     Indication: PRODUCT USED FOR UNKNOWN INDICATION
  9. METFORMIN HYDROCHLORIDE [Suspect]
     Indication: PRODUCT USED FOR UNKNOWN INDICATION

REACTIONS (5)
  - Acidosis [None]
  - Lactic acidosis [None]
  - Renal failure acute [None]
  - Hepatic failure [None]
  - Hypotension [None]
